FAERS Safety Report 6552081-7 (Version None)
Quarter: 2010Q1

REPORT INFORMATION
  Report Type: 
  Country: None (occurrence: None)
  Receive Date: 20100126
  Receipt Date: 20100113
  Transmission Date: 20100710
  Serious: Yes (Hospitalization)
  Sender: FDA-Public Use
  Company Number: US-BAYER-200942639NA

PATIENT
  Age: 72 Year
  Sex: Female
  Weight: 73 kg

DRUGS (13)
  1. SORAFENIB [Suspect]
     Indication: HEPATIC NEOPLASM MALIGNANT
     Dosage: TOTAL DAILY DOSE: 800 MG  UNIT DOSE: 200 MG
     Route: 048
     Dates: start: 20091204, end: 20091209
  2. BUDESONIDE [Concomitant]
     Indication: CHRONIC OBSTRUCTIVE PULMONARY DISEASE
     Dosage: 2 PUFFS
     Route: 055
  3. BUMEX [Concomitant]
     Indication: CHRONIC OBSTRUCTIVE PULMONARY DISEASE
     Route: 048
  4. HYDROCORTISONE [Concomitant]
     Indication: CHRONIC OBSTRUCTIVE PULMONARY DISEASE
     Route: 048
  5. LEVOTHYROXINE SODIUM [Concomitant]
     Indication: HYPOTHYROIDISM
     Route: 048
  6. SINGULAIR [Concomitant]
     Indication: CHRONIC OBSTRUCTIVE PULMONARY DISEASE
     Route: 048
  7. PANTOPRAZOLE [Concomitant]
     Indication: PROPHYLAXIS
     Route: 048
  8. LACTULOSE [Concomitant]
     Indication: ENCEPHALOPATHY
     Route: 048
     Dates: start: 20090107
  9. AUGMENTIN [Concomitant]
     Indication: PANCREATITIS
     Dosage: AS USED: 875/125 MG
     Route: 048
  10. DETEMIR INSULIN [Concomitant]
     Indication: TYPE 2 DIABETES MELLITUS
  11. ALBUTEROL [Concomitant]
     Indication: CHRONIC OBSTRUCTIVE PULMONARY DISEASE
     Dosage: 10 MG
     Route: 055
  12. MONTELUKAST SODIUM [Concomitant]
     Indication: CHRONIC OBSTRUCTIVE PULMONARY DISEASE
     Route: 048
  13. MAGNESIUM OXIDE [Concomitant]
     Indication: MINERAL SUPPLEMENTATION
     Route: 048

REACTIONS (2)
  - HEPATIC ENCEPHALOPATHY [None]
  - PANCREATITIS ACUTE [None]
